FAERS Safety Report 4397577-1 (Version None)
Quarter: 2004Q3

REPORT INFORMATION
  Report Type: 
  Country: None (occurrence: None)
  Receive Date: 20040709
  Receipt Date: 20040624
  Transmission Date: 20050211
  Serious: Yes (Hospitalization)
  Sender: FDA-Public Use
  Company Number: 2004AP03332

PATIENT
  Age: 63 Year
  Sex: Male

DRUGS (13)
  1. IRESSA [Suspect]
     Indication: LUNG ADENOCARCINOMA
     Dosage: 250 MG DAILY PO
     Route: 048
     Dates: start: 20040618, end: 20040621
  2. 8-HOUR BAYER [Concomitant]
  3. TENORMIN [Concomitant]
  4. SIGMART [Concomitant]
  5. SUNRYTHM [Concomitant]
  6. PROTECADIN [Concomitant]
  7. ALLOPURINOL TAB [Concomitant]
  8. LUPRAC [Concomitant]
  9. JUZENTAIHOTO [Concomitant]
  10. VOLTAREN [Concomitant]
  11. GASTER [Concomitant]
  12. PROMAC [Concomitant]
  13. GASTROM [Concomitant]

REACTIONS (1)
  - PANCYTOPENIA [None]
